FAERS Safety Report 8418200-2 (Version None)
Quarter: 2012Q2

REPORT INFORMATION
  Report Type: 
  Country: None (occurrence: None)
  Receive Date: 20120323
  Receipt Date: 20110516
  Transmission Date: 20120825
  Serious: Yes (Hospitalization)
  Sender: FDA-Public Use
  Company Number: 163-21880-11022897

PATIENT
  Age: 72 Year
  Sex: Female

DRUGS (21)
  1. ACYCLOVIR [Concomitant]
  2. ALIGN (BIFIDOBACTERIUM INFANTIS) [Concomitant]
  3. LASIX [Concomitant]
  4. SIMVASTATIN [Concomitant]
  5. VELCADE [Concomitant]
  6. LEVOXYL [Concomitant]
  7. VITAMIN B12 [Concomitant]
  8. DEXAMETHASONE [Concomitant]
  9. SERTRALINE HYDROCHLORIDE [Concomitant]
  10. AMBIEN [Concomitant]
  11. FUROSEMIDE [Concomitant]
  12. CALCIUM CARBONATE [Concomitant]
  13. HEMTOGEN (HEMATOGENE FOR INJECTION) [Concomitant]
  14. ASPIRIN [Concomitant]
  15. METOPROLOL TARTRATE [Concomitant]
  16. OXYCODONE HCL [Concomitant]
  17. BACTRIM [Concomitant]
  18. REVLIMID [Suspect]
     Indication: MULTIPLE MYELOMA
     Dosage: 25 MG, 1 IN 1 D, PO ; 15 MG, DAILY X 21 DAYS, PO
     Route: 048
     Dates: start: 20090101, end: 20100101
  19. REVLIMID [Suspect]
     Indication: MULTIPLE MYELOMA
     Dosage: 25 MG, 1 IN 1 D, PO ; 15 MG, DAILY X 21 DAYS, PO
     Route: 048
     Dates: start: 20100914
  20. CLONAZEPAM [Concomitant]
  21. FENTANYL [Concomitant]

REACTIONS (1)
  - PNEUMONIA [None]
